FAERS Safety Report 14935140 (Version 1)
Quarter: 2018Q2

REPORT INFORMATION
  Report Type: Spontaneous
  Country: US (occurrence: US)
  Receive Date: 20180506
  Receipt Date: 20180506
  Transmission Date: 20180711
  Serious: Yes (Life-Threatening, Disabling)
  Sender: FDA-Public Use
  Company Number: None

PATIENT
  Age: 14 Year
  Sex: Female
  Weight: 56.25 kg

DRUGS (3)
  1. SINGULAIR [Suspect]
     Active Substance: MONTELUKAST SODIUM
     Indication: COLD URTICARIA
  2. ZYRTEC [Concomitant]
     Active Substance: CETIRIZINE HYDROCHLORIDE
  3. FLONASE [Concomitant]
     Active Substance: FLUTICASONE PROPIONATE

REACTIONS (14)
  - Abdominal discomfort [None]
  - Crying [None]
  - Anxiety [None]
  - Hallucination, auditory [None]
  - Insomnia [None]
  - Depression [None]
  - School refusal [None]
  - Headache [None]
  - Palpitations [None]
  - Muscle spasms [None]
  - Visual impairment [None]
  - Vocal cord dysfunction [None]
  - Disturbance in attention [None]
  - Memory impairment [None]

NARRATIVE: CASE EVENT DATE: 20150730
